FAERS Safety Report 11236990 (Version 1)
Quarter: 2015Q3

REPORT INFORMATION
  Report Type: Spontaneous
  Country: FR (occurrence: FR)
  Receive Date: 20150703
  Receipt Date: 20150703
  Transmission Date: 20151125
  Serious: Yes (Death, Hospitalization)
  Sender: FDA-Public Use
  Company Number: FR-ASTRAZENECA-2014SE50883

PATIENT
  Age: 19223 Day
  Sex: Male

DRUGS (8)
  1. INEXIUM [Suspect]
     Active Substance: ESOMEPRAZOLE
     Indication: GASTRIC BYPASS
     Route: 042
     Dates: start: 20131222, end: 20131222
  2. PERFALGAN [Concomitant]
     Active Substance: ACETAMINOPHEN
  3. EXFORGE [Concomitant]
     Active Substance: AMLODIPINE BESYLATE\VALSARTAN
  4. PLAVIX [Concomitant]
     Active Substance: CLOPIDOGREL BISULFATE
  5. TOPALGIC [Concomitant]
     Active Substance: TRAMADOL
  6. TAHOR [Concomitant]
     Active Substance: ATORVASTATIN CALCIUM
  7. VITAMIN B1B6 [Concomitant]
  8. TERCIAN [Concomitant]
     Active Substance: CYAMEMAZINE

REACTIONS (2)
  - Oropharyngeal neoplasm [Fatal]
  - Anaphylactic shock [Recovered/Resolved]

NARRATIVE: CASE EVENT DATE: 20131222
